FAERS Safety Report 24432494 (Version 1)
Quarter: 2024Q4

REPORT INFORMATION
  Report Type: Spontaneous
  Country: GB (occurrence: GB)
  Receive Date: 20241014
  Receipt Date: 20241014
  Transmission Date: 20250114
  Serious: Yes (Hospitalization, Disabling, Other)
  Sender: TEVA
  Company Number: None

PATIENT
  Age: 85 Year
  Sex: Female

DRUGS (2)
  1. ALLOPURINOL [Suspect]
     Active Substance: ALLOPURINOL
     Indication: Gout
     Dosage: 300 MG ONCE A DAY IN THE MORNING
     Route: 065
     Dates: start: 20240916, end: 20241004
  2. FOLIC ACID [Concomitant]
     Active Substance: FOLIC ACID

REACTIONS (1)
  - Rash pruritic [Not Recovered/Not Resolved]

NARRATIVE: CASE EVENT DATE: 20240920
